FAERS Safety Report 7995798-X (Version None)
Quarter: 2011Q4

REPORT INFORMATION
  Report Type: 
  Country: None (occurrence: None)
  Receive Date: 20111216
  Receipt Date: 20111206
  Transmission Date: 20120403
  Serious: Yes (Hospitalization, Other)
  Sender: FDA-Public Use
  Company Number: 2011SP057653

PATIENT
  Age: 60 Year
  Sex: Female

DRUGS (2)
  1. PEG-INTRON [Suspect]
     Indication: HEPATITIS C
     Dates: start: 20110912
  2. VICTRELIS [Suspect]
     Indication: HEPATITIS C
     Dates: start: 20111010

REACTIONS (2)
  - TRANSFUSION [None]
  - MEMORY IMPAIRMENT [None]
